FAERS Safety Report 16165351 (Version 1)
Quarter: 2019Q2

REPORT INFORMATION
  Report Type: Spontaneous
  Country: FR (occurrence: FR)
  Receive Date: 20190405
  Receipt Date: 20190405
  Transmission Date: 20190711
  Serious: Yes (Hospitalization)
  Sender: FDA-Public Use
  Company Number: FR-PFIZER INC-2019141422

PATIENT
  Age: 54 Year
  Sex: Female
  Weight: 60 kg

DRUGS (8)
  1. LANSOPRAZOLE MYLAN [Suspect]
     Active Substance: LANSOPRAZOLE
     Dosage: UNK
     Route: 048
     Dates: start: 20190121
  2. HYDROCORTISONE. [Suspect]
     Active Substance: HYDROCORTISONE
     Dosage: UNK
     Dates: start: 20190116
  3. BICNU [Suspect]
     Active Substance: CARMUSTINE
     Indication: B-CELL LYMPHOMA
     Dosage: 500 MG, (DAY 1)
     Route: 041
     Dates: start: 20190110, end: 20190110
  4. CYTARABINE ACCORD [Suspect]
     Active Substance: CYTARABINE
     Indication: B-CELL LYMPHOMA
     Dosage: 340 MG, (DAY 1 TO DAY 4)
     Route: 041
     Dates: start: 20190110, end: 20190113
  5. AZACTAM [Suspect]
     Active Substance: AZTREONAM
     Indication: INFECTION
     Dosage: UNK
     Route: 041
     Dates: start: 20190122, end: 20190129
  6. NIVESTIM [Suspect]
     Active Substance: FILGRASTIM
     Indication: LEUKOPENIA
     Dosage: UNK
     Route: 041
     Dates: start: 20190121
  7. ETOPOSIDE MYLAN [Suspect]
     Active Substance: ETOPOSIDE
     Indication: B-CELL LYMPHOMA
     Dosage: 172 MG, (DAY 1 TO DAY 4)
     Route: 041
     Dates: start: 20190110, end: 20190113
  8. METRONIDAZOLE. [Suspect]
     Active Substance: METRONIDAZOLE
     Dosage: UNK
     Dates: start: 20190125, end: 20190127

REACTIONS (3)
  - Pruritus [Recovering/Resolving]
  - Rash vesicular [Recovering/Resolving]
  - Rash [Recovering/Resolving]

NARRATIVE: CASE EVENT DATE: 20190114
